FAERS Safety Report 4372331-5 (Version None)
Quarter: 2004Q2

REPORT INFORMATION
  Report Type: 
  Country: None (occurrence: None)
  Receive Date: 20040602
  Receipt Date: 20040512
  Transmission Date: 20050107
  Serious: Yes (Hospitalization, Other)
  Sender: FDA-Public Use
  Company Number: 2002096815JP

PATIENT
  Age: 77 Year
  Sex: Female
  Weight: 45 kg

DRUGS (9)
  1. CABERGOLINE [Suspect]
     Indication: PARKINSON'S DISEASE
     Dosage: 1 MG, QD, ORAL
     Route: 048
     Dates: start: 20010313, end: 20010427
  2. CABERGOLINE [Suspect]
     Indication: PARKINSON'S DISEASE
     Dosage: 1 MG, QD, ORAL
     Route: 048
     Dates: start: 20010607
  3. LEVODOPA (BENSERAZIDEHYDROCHLO (BENSERAZIDE HYDROCHLORIDE) [Suspect]
     Indication: PARKINSON'S DISEASE
     Dosage: 300 MG, ORAL
     Route: 048
     Dates: start: 20000919, end: 20010901
  4. AMANTADINE HCL [Suspect]
     Indication: PARKINSON'S DISEASE
     Dosage: 150 MG, ORAL
     Route: 048
     Dates: start: 20000204, end: 20010901
  5. DROXIDOPA (DROXIDOPA) [Suspect]
     Indication: PARKINSON'S DISEASE
     Dosage: 200 MG, ORAL
     Route: 048
     Dates: start: 20000303, end: 20010901
  6. CLARITHROMYCIN [Concomitant]
  7. TICLOPIDINE HYDROCHLORIDE [Concomitant]
  8. FLUVOXAMINE MALEATE [Concomitant]
  9. CLOXAZOLAM (CLOXAZOLAM) [Concomitant]

REACTIONS (14)
  - AKINESIA [None]
  - ANOREXIA [None]
  - ASPARTATE AMINOTRANSFERASE INCREASED [None]
  - BLOOD CHOLESTEROL ABNORMAL [None]
  - BLOOD CREATINE PHOSPHOKINASE INCREASED [None]
  - BLOOD ELECTROLYTES ABNORMAL [None]
  - BLOOD LACTATE DEHYDROGENASE INCREASED [None]
  - DELIRIUM [None]
  - GAIT DISTURBANCE [None]
  - HALLUCINATION [None]
  - INFLUENZA [None]
  - MOBILITY DECREASED [None]
  - NEUROLEPTIC MALIGNANT SYNDROME [None]
  - PYREXIA [None]
